FAERS Safety Report 19565704 (Version 5)
Quarter: 2022Q4

REPORT INFORMATION
  Report Type: Report from Study
  Country: US (occurrence: US)
  Receive Date: 20210716
  Receipt Date: 20221202
  Transmission Date: 20230113
  Serious: No
  Sender: FDA-Public Use
  Company Number: US-NOVARTISTESTPH-NVSC2021US158168

PATIENT
  Age: 24 Year
  Sex: Male

DRUGS (3)
  1. ILARIS [Suspect]
     Active Substance: CANAKINUMAB
     Indication: Still^s disease
     Dosage: 250 MG, Q4H
     Route: 058
     Dates: start: 20140206
  2. ILARIS [Suspect]
     Active Substance: CANAKINUMAB
     Indication: Cryopyrin associated periodic syndrome
     Dosage: 250 MG, EVERY 4 WEEKS
     Route: 058
     Dates: start: 20191010
  3. ILARIS [Suspect]
     Active Substance: CANAKINUMAB
     Indication: Juvenile idiopathic arthritis

REACTIONS (4)
  - Malaise [Unknown]
  - Back pain [Unknown]
  - Condition aggravated [Unknown]
  - Product administration error [Unknown]

NARRATIVE: CASE EVENT DATE: 20220410
